FAERS Safety Report 18336746 (Version 2)
Quarter: 2021Q1

REPORT INFORMATION
  Report Type: Spontaneous
  Country: US (occurrence: US)
  Receive Date: 20201001
  Receipt Date: 20210131
  Transmission Date: 20210419
  Serious: Yes (Other)
  Sender: FDA-Public Use
  Company Number: US-PURDUE-USA-2020-0168462

PATIENT
  Age: 30 Year
  Sex: Female

DRUGS (11)
  1. OXYCONTIN [Suspect]
     Active Substance: OXYCODONE HYDROCHLORIDE
     Indication: PRODUCT USED FOR UNKNOWN INDICATION
     Dosage: 15 MG, UNK
     Route: 048
  2. OXYCODONE HCL TABLETS (RHODES 91?490) [Suspect]
     Active Substance: OXYCODONE HYDROCHLORIDE
     Dosage: 20 MG, QID
     Route: 048
     Dates: start: 20161108
  3. BUPRENORPHINE TRANSDERMAL PATCH (SIMILAR TO NDA 21?306) [Suspect]
     Active Substance: BUPRENORPHINE
     Indication: PRODUCT USED FOR UNKNOWN INDICATION
     Dosage: 7.5 MCG/HR, UNK
     Route: 062
     Dates: start: 201906
  4. SUBOXONE [Suspect]
     Active Substance: BUPRENORPHINE HYDROCHLORIDE\NALOXONE HYDROCHLORIDE
     Indication: PRODUCT USED FOR UNKNOWN INDICATION
     Route: 065
  5. VALIUM [Suspect]
     Active Substance: DIAZEPAM
     Indication: PRODUCT USED FOR UNKNOWN INDICATION
     Route: 065
  6. OXYCODONE HYDROCHLORIDE (SIMILAR TO NDA 22?272) [Suspect]
     Active Substance: OXYCODONE HYDROCHLORIDE
     Indication: PRODUCT USED FOR UNKNOWN INDICATION
     Dosage: 15 MG, 4 PILLSDAILY
     Route: 048
  7. HYDROCODONE BITARTRATE (SIMILAR TO NDA 206627) [Suspect]
     Active Substance: HYDROCODONE BITARTRATE
     Indication: PRODUCT USED FOR UNKNOWN INDICATION
     Dosage: 5/325
     Route: 048
     Dates: start: 20121030, end: 201611
  8. VICODIN [Suspect]
     Active Substance: ACETAMINOPHEN\HYDROCODONE BITARTRATE
     Indication: PAIN
     Dosage: 5?500 MG, Q6H PRN
     Route: 048
     Dates: start: 20121030
  9. SKELAXIN [Concomitant]
     Active Substance: METAXALONE
     Indication: PRODUCT USED FOR UNKNOWN INDICATION
     Dosage: 800 MG, TID
     Route: 048
  10. OXYCODONE HCL TABLETS (RHODES 91?490) [Suspect]
     Active Substance: OXYCODONE HYDROCHLORIDE
     Indication: PAIN
     Dosage: 15 MG, QID
     Route: 048
     Dates: start: 20161108
  11. OXYCODONE HCL TABLETS (RHODES 91?490) [Suspect]
     Active Substance: OXYCODONE HYDROCHLORIDE
     Dosage: 15 MG, Q6H PRN
     Route: 048
     Dates: start: 20190211

REACTIONS (28)
  - Movement disorder [Unknown]
  - General physical condition abnormal [Unknown]
  - Drug withdrawal syndrome [Unknown]
  - Personality change [Unknown]
  - Emotional distress [Unknown]
  - Paraesthesia [Unknown]
  - Depression [Unknown]
  - Illness [Unknown]
  - Drug abuse [Unknown]
  - Suicidal behaviour [Unknown]
  - Pain [Unknown]
  - Weight decreased [Unknown]
  - Mental disorder [Unknown]
  - Psychiatric symptom [Unknown]
  - Irritability [Unknown]
  - Agitation [Unknown]
  - Feeling abnormal [Unknown]
  - Drug dependence [Unknown]
  - Product prescribing issue [Unknown]
  - Unevaluable event [Unknown]
  - Walking disability [Unknown]
  - Injury [Unknown]
  - Mental fatigue [Unknown]
  - Somnolence [Unknown]
  - Back pain [Unknown]
  - Dysstasia [Unknown]
  - Circadian rhythm sleep disorder [Unknown]
  - Sleep disorder [Unknown]

NARRATIVE: CASE EVENT DATE: 201902
